FAERS Safety Report 9824696 (Version 4)
Quarter: 2017Q1

REPORT INFORMATION
  Report Type: Report from Study
  Country: JP (occurrence: JP)
  Receive Date: 20140117
  Receipt Date: 20170106
  Transmission Date: 20170429
  Serious: Yes (Hospitalization)
  Sender: FDA-Public Use
  Company Number: JP-AMGEN-JPNCT2014002718

PATIENT
  Age: 81 Year
  Sex: Female
  Weight: 40.5 kg

DRUGS (8)
  1. CALFINA [Concomitant]
     Active Substance: ALFACALCIDOL
     Dosage: 0.5 MUG, QD
     Route: 048
     Dates: start: 20051202, end: 20130724
  2. FOSAMAC [Concomitant]
     Active Substance: ALENDRONATE SODIUM
     Dosage: 35 MG, QD
     Route: 048
     Dates: start: 20051202, end: 20130724
  3. DENOSUMAB [Suspect]
     Active Substance: DENOSUMAB
     Dosage: 60 MG, UNK
     Route: 058
     Dates: start: 20150407
  4. BLOPRESS [Concomitant]
     Active Substance: CANDESARTAN CILEXETIL
     Dosage: 4 MG, QD
     Route: 048
  5. MEMARY [Concomitant]
     Active Substance: MEMANTINE HYDROCHLORIDE
     Dosage: 5 MG, QD
     Route: 048
  6. DENOSUMAB [Suspect]
     Active Substance: DENOSUMAB
     Dosage: 60 MG, UNK
     Route: 058
     Dates: start: 20141007
  7. DENOSUMAB [Suspect]
     Active Substance: DENOSUMAB
     Indication: OSTEOPOROSIS
     Dosage: 60 MG, UNK
     Route: 058
     Dates: start: 20130906
  8. BUFFERIN [Concomitant]
     Active Substance: ASPIRIN
     Dosage: 81 MG, QD
     Route: 048

REACTIONS (1)
  - Osteoporotic fracture [Recovering/Resolving]

NARRATIVE: CASE EVENT DATE: 20131121
